FAERS Safety Report 6412505-2 (Version None)
Quarter: 2009Q4

REPORT INFORMATION
  Report Type: 
  Country: None (occurrence: None)
  Receive Date: 20091023
  Receipt Date: 20090205
  Transmission Date: 20100525
  Serious: No
  Sender: FDA-Public Use
  Company Number: US-BRISTOL-MYERS SQUIBB COMPANY-14495469

PATIENT

DRUGS (1)
  1. KENALOG-40 [Suspect]

REACTIONS (2)
  - MEDICATION ERROR [None]
  - OVERDOSE [None]
